FAERS Safety Report 13766404 (Version 2)
Quarter: 2017Q3

REPORT INFORMATION
  Report Type: Report from Study
  Country: US (occurrence: US)
  Receive Date: 20170719
  Receipt Date: 20170727
  Transmission Date: 20171127
  Serious: Yes (Hospitalization, Other)
  Sender: FDA-Public Use
  Company Number: US-PFIZER INC-2017298622

PATIENT
  Age: 73 Year
  Sex: Female

DRUGS (1)
  1. IBRANCE [Suspect]
     Active Substance: PALBOCICLIB
     Indication: BREAST CANCER FEMALE
     Dosage: 125 MG, 1X/DAY
     Route: 048
     Dates: start: 20170701

REACTIONS (4)
  - Pulmonary oedema [Unknown]
  - Fatigue [Not Recovered/Not Resolved]
  - Dyspnoea [Unknown]
  - Pulmonary thrombosis [Unknown]

NARRATIVE: CASE EVENT DATE: 201707
